FAERS Safety Report 13914682 (Version 1)
Quarter: 2017Q3

REPORT INFORMATION
  Report Type: Spontaneous
  Country: US (occurrence: US)
  Receive Date: 20170829
  Receipt Date: 20170829
  Transmission Date: 20171127
  Serious: No
  Sender: FDA-Public Use
  Company Number: US-JNJFOC-20170717839

PATIENT
  Sex: Female
  Weight: 99.34 kg

DRUGS (18)
  1. BACLOFEN. [Concomitant]
     Active Substance: BACLOFEN
     Route: 065
  2. CYMBALTA [Concomitant]
     Active Substance: DULOXETINE HYDROCHLORIDE
     Route: 065
  3. REMICADE [Suspect]
     Active Substance: INFLIXIMAB
     Indication: PSORIATIC ARTHROPATHY
     Route: 042
  4. REMICADE [Suspect]
     Active Substance: INFLIXIMAB
     Indication: RHEUMATOID ARTHRITIS
     Route: 042
     Dates: start: 2013
  5. OXYMORPHONE [Concomitant]
     Active Substance: OXYMORPHONE
     Dosage: TAKE ONE TABLET BY MOUTH TWO TIMES DAILY
     Route: 065
  6. SYMBICORT [Concomitant]
     Active Substance: BUDESONIDE\FORMOTEROL FUMARATE DIHYDRATE
     Route: 065
  7. REMICADE [Suspect]
     Active Substance: INFLIXIMAB
     Indication: PSORIATIC ARTHROPATHY
     Route: 042
     Dates: start: 201202, end: 201204
  8. NYSTATIN. [Concomitant]
     Active Substance: NYSTATIN
     Indication: CANDIDA INFECTION
     Dosage: 1 TO 2 TEA SPOONS SWISH AND SWALLOW 4 TIMES A DAY AS NEEDED FOR THRUSH
     Route: 065
  9. REMICADE [Suspect]
     Active Substance: INFLIXIMAB
     Indication: RHEUMATOID ARTHRITIS
     Route: 042
     Dates: start: 201202, end: 201204
  10. ARAVA [Concomitant]
     Active Substance: LEFLUNOMIDE
     Dosage: TAKE 2 TABLETS BY MOUTH ONCE DAILY WITH FOOD ALTERNATING WITH ONE TAB ONCE DAILY
     Route: 065
  11. REMICADE [Suspect]
     Active Substance: INFLIXIMAB
     Indication: RHEUMATOID ARTHRITIS
     Route: 042
  12. VASOTEC [Concomitant]
     Active Substance: ENALAPRIL MALEATE
     Dosage: 1 TABLET BY MOUTH 2 TIMES DAILY
     Route: 065
  13. FENTANYL. [Concomitant]
     Active Substance: FENTANYL
     Route: 065
  14. SULINDAC. [Concomitant]
     Active Substance: SULINDAC
     Dosage: 1 TABLET BY MOUTH TWO TIMES DAILY WITH FOOD
     Route: 065
  15. METOPROLOL. [Concomitant]
     Active Substance: METOPROLOL
     Dosage: ONE TABLET BY MOUTH 2 TIMES DAILY
     Route: 065
  16. REMICADE [Suspect]
     Active Substance: INFLIXIMAB
     Indication: PSORIATIC ARTHROPATHY
     Route: 042
     Dates: start: 2013
  17. TOPAMAX [Concomitant]
     Active Substance: TOPIRAMATE
     Route: 065
  18. PENNSAID [Concomitant]
     Active Substance: DICLOFENAC SODIUM
     Dosage: 2 PUMPS TO EACH KNEE TWICE DAILY (MAX DOSE4 PUMPS TWICE DAILY)
     Route: 065

REACTIONS (5)
  - Chest pain [Unknown]
  - Infusion related reaction [Unknown]
  - Drug hypersensitivity [Unknown]
  - Pain [Unknown]
  - Weight decreased [Unknown]
